FAERS Safety Report 11057392 (Version 2)
Quarter: 2015Q2

REPORT INFORMATION
  Report Type: Spontaneous
  Country: US (occurrence: US)
  Receive Date: 20150422
  Receipt Date: 20150501
  Transmission Date: 20150821
  Serious: Yes (Other)
  Sender: FDA-Public Use
  Company Number: US-BAUSCH-BL-2015-011936

PATIENT
  Sex: Male

DRUGS (2)
  1. XENAZINE [Suspect]
     Active Substance: TETRABENAZINE
     Indication: DYSTONIA
     Route: 065
  2. XENAZINE [Suspect]
     Active Substance: TETRABENAZINE
     Dosage: 1/4 TH PILL IN DAY TIME AND THE REST IN THE EVENING.
     Route: 065
     Dates: start: 2015

REACTIONS (7)
  - Loss of consciousness [Unknown]
  - Musculoskeletal pain [Unknown]
  - Impaired driving ability [Unknown]
  - Intentional product use issue [Not Recovered/Not Resolved]
  - Drug effect increased [Unknown]
  - Wrong technique in drug usage process [Not Recovered/Not Resolved]
  - Drug administration error [Not Recovered/Not Resolved]

NARRATIVE: CASE EVENT DATE: 2015
